FAERS Safety Report 16336920 (Version 1)
Quarter: 2019Q2

REPORT INFORMATION
  Report Type: Report from Study
  Country: None (occurrence: HU)
  Receive Date: 20190521
  Receipt Date: 20190521
  Transmission Date: 20190711
  Serious: Yes (Hospitalization, Other)
  Sender: FDA-Public Use
  Company Number: HU-ABBVIE-19S-076-2784886-00

PATIENT
  Age: 71 Year
  Sex: Female

DRUGS (4)
  1. CLOPIDOGREL [Concomitant]
     Active Substance: CLOPIDOGREL BISULFATE
     Indication: PROPHYLAXIS
     Route: 048
     Dates: start: 201405
  2. DUODOPA [Suspect]
     Active Substance: CARBIDOPA\LEVODOPA
     Indication: PARKINSON^S DISEASE
     Dosage: MD:4.0 ML; CD:2.8 ML/H; ED: 1.5 ML
     Route: 050
     Dates: start: 20140513
  3. MELOXAN [Concomitant]
     Indication: ARTHROPATHY
     Route: 048
     Dates: start: 2015
  4. TENAXUM [Concomitant]
     Active Substance: RILMENIDINE
     Indication: HYPERTENSION
     Route: 048
     Dates: start: 2016

REACTIONS (3)
  - Stoma site pain [Recovered/Resolved]
  - Medical device removal [Unknown]
  - Skin disorder [Unknown]

NARRATIVE: CASE EVENT DATE: 20190504
